FAERS Safety Report 4863001-5 (Version None)
Quarter: 2005Q4

REPORT INFORMATION
  Report Type: 
  Country: None (occurrence: None)
  Receive Date: 20051221
  Receipt Date: 20051215
  Transmission Date: 20060501
  Serious: Yes (Death, Hospitalization)
  Sender: FDA-Public Use
  Company Number: FR-MERCK-0512FRA00071

PATIENT
  Age: 81 Year
  Sex: Female

DRUGS (4)
  1. STROMECTOL [Suspect]
     Indication: PROPHYLAXIS
     Route: 048
     Dates: start: 20051122, end: 20051122
  2. MEPROBAMATE [Concomitant]
     Indication: AGITATION
     Route: 048
     Dates: end: 20051213
  3. LORMETAZEPAM [Concomitant]
     Indication: INSOMNIA
     Route: 048
     Dates: end: 20051213
  4. ANTIMICROBIAL (UNSPECIFIED) [Concomitant]
     Indication: LUNG INFECTION
     Route: 065
     Dates: start: 20051127, end: 20051207

REACTIONS (3)
  - DEATH [None]
  - DIARRHOEA [None]
  - LUNG INFECTION [None]
